FAERS Safety Report 9272865 (Version 2)
Quarter: 2013Q2

REPORT INFORMATION
  Report Type: Spontaneous
  Country: US (occurrence: US)
  Receive Date: 20130506
  Receipt Date: 20130611
  Transmission Date: 20140414
  Serious: Yes (Hospitalization, Other)
  Sender: FDA-Public Use
  Company Number: US-JNJFOC-20130500419

PATIENT
  Age: 8 Decade
  Sex: Female

DRUGS (5)
  1. XARELTO [Suspect]
     Indication: ATRIAL FIBRILLATION
     Route: 048
     Dates: start: 201208
  2. GENUINE BAYER ASPIRIN [Interacting]
     Indication: PRODUCT USED FOR UNKNOWN INDICATION
     Route: 048
     Dates: start: 201208, end: 201304
  3. ASPIRIN [Suspect]
     Indication: ISCHAEMIC HEART DISEASE PROPHYLAXIS
     Route: 065
     Dates: start: 1988, end: 201208
  4. ASPIRIN [Suspect]
     Indication: ISCHAEMIC HEART DISEASE PROPHYLAXIS
     Route: 065
  5. DILTIAZEM [Concomitant]
     Route: 065

REACTIONS (15)
  - Atrial fibrillation [Unknown]
  - Hypertension [Unknown]
  - Gastric haemorrhage [Unknown]
  - Mouth haemorrhage [Unknown]
  - Blood pressure decreased [Unknown]
  - Transient ischaemic attack [Unknown]
  - Eye haemorrhage [Unknown]
  - Asthenia [Not Recovered/Not Resolved]
  - Fatigue [Not Recovered/Not Resolved]
  - Constipation [Unknown]
  - Musculoskeletal stiffness [Unknown]
  - Headache [Unknown]
  - Rash [Unknown]
  - Drug interaction [Unknown]
  - Coagulopathy [Unknown]
